FAERS Safety Report 20914133 (Version 1)
Quarter: 2022Q2

REPORT INFORMATION
  Report Type: Spontaneous
  Country: US (occurrence: US)
  Receive Date: 20220604
  Receipt Date: 20220604
  Transmission Date: 20220721
  Serious: No
  Sender: FDA-Public Use
  Company Number: US-SA-SAC20220523000535

PATIENT
  Sex: Female
  Weight: 132 kg

DRUGS (1)
  1. DUPIXENT [Suspect]
     Active Substance: DUPILUMAB
     Indication: Dermatitis atopic
     Dosage: UNK UNK, QOW, 1 SYRINGE UNDER THE SKIN
     Route: 058
     Dates: start: 202103

REACTIONS (1)
  - Exposure during pregnancy [Unknown]
